FAERS Safety Report 20105212 (Version 1)
Quarter: 2021Q4

REPORT INFORMATION
  Report Type: Spontaneous
  Country: FR (occurrence: FR)
  Receive Date: 20211124
  Receipt Date: 20211124
  Transmission Date: 20220303
  Serious: Yes (Other)
  Sender: FDA-Public Use
  Company Number: FR-SANOFI-00857079

PATIENT
  Age: 69 Year
  Sex: Female

DRUGS (1)
  1. RIFAMPIN [Suspect]
     Active Substance: RIFAMPIN
     Indication: Chemotherapy
     Dosage: UNK (TAKES 3 TABLETS A DAY MORNING AND EVENING)

REACTIONS (2)
  - Wound infection staphylococcal [Unknown]
  - Impaired healing [Unknown]
